FAERS Safety Report 7888286-2 (Version None)
Quarter: 2011Q4

REPORT INFORMATION
  Report Type: 
  Country: None (occurrence: None)
  Receive Date: 20111103
  Receipt Date: 20111027
  Transmission Date: 20120403
  Serious: Yes (Disabling)
  Sender: FDA-Public Use
  Company Number: JP-BAYER-2010-006121

PATIENT
  Age: 66 Year
  Sex: Female
  Weight: 48 kg

DRUGS (7)
  1. SORAFENIB (RAF KINASE INHIBITOR) [Suspect]
     Indication: HEPATIC NEOPLASM MALIGNANT
     Dosage: 200 MG, QOD
     Route: 048
     Dates: start: 20090804, end: 20091228
  2. GLAKAY [Concomitant]
     Indication: OSTEOPOROSIS
     Dosage: DAILY DOSE 45 MG
     Route: 048
  3. LIVACT [Concomitant]
     Indication: HYPOALBUMINAEMIA
     Dosage: DAILY DOSE 3 DF
     Route: 048
  4. PROMAC [POLAPREZINC] [Concomitant]
     Indication: GASTRITIS
     Dosage: DAILY DOSE 150 MG
     Route: 048
  5. LOXONIN [Concomitant]
     Indication: CANCER PAIN
     Dosage: DAILY DOSE 180 MG
     Route: 048
  6. GABAPENTIN [Concomitant]
     Indication: CANCER PAIN
     Dosage: DAILY DOSE 1200 MG
     Route: 048
  7. CEFAZOLIN SODIUM [Concomitant]
     Indication: DIARRHOEA
     Dosage: DAILY DOSE 3 G
     Route: 048

REACTIONS (6)
  - OEDEMA [None]
  - HYPERTENSION [None]
  - BLOOD ALBUMIN DECREASED [None]
  - PROTEIN URINE [None]
  - WEIGHT INCREASED [None]
  - ASCITES [None]
